FAERS Safety Report 6463684-2 (Version None)
Quarter: 2009Q4

REPORT INFORMATION
  Report Type: 
  Country: None (occurrence: None)
  Receive Date: 20091201
  Receipt Date: 20091120
  Transmission Date: 20100525
  Serious: Yes (Hospitalization)
  Sender: FDA-Public Use
  Company Number: US-JNJFOC-20091106521

PATIENT
  Sex: Female
  Weight: 68.04 kg

DRUGS (8)
  1. REMICADE [Suspect]
     Indication: CROHN'S DISEASE
     Dosage: 3 INFUSIONS
     Route: 042
     Dates: start: 19980101
  2. METHADONE HCL [Suspect]
     Indication: DRUG USE FOR UNKNOWN INDICATION
  3. PREDNISONE TAB [Concomitant]
     Indication: CROHN'S DISEASE
  4. PENTASA [Concomitant]
     Indication: CROHN'S DISEASE
  5. RANITIDINE [Concomitant]
     Indication: GASTROOESOPHAGEAL REFLUX DISEASE
  6. RANITIDINE [Concomitant]
     Indication: CROHN'S DISEASE
  7. XANAX [Concomitant]
     Indication: ANXIETY
  8. SEROQUEL [Concomitant]

REACTIONS (8)
  - CARDIAC ARREST [None]
  - COLECTOMY [None]
  - COMA [None]
  - DIARRHOEA [None]
  - DRUG INEFFECTIVE [None]
  - INTESTINAL PERFORATION [None]
  - OVERDOSE [None]
  - VOMITING [None]
